FAERS Safety Report 21615570 (Version 1)
Quarter: 2022Q4

REPORT INFORMATION
  Report Type: Spontaneous
  Country: US (occurrence: None)
  Receive Date: 20221118
  Receipt Date: 20221118
  Transmission Date: 20230113
  Serious: Yes (Disabling)
  Sender: FDA-Public Use
  Company Number: None

PATIENT
  Age: 59 Year
  Sex: Male
  Weight: 99 kg

DRUGS (18)
  1. SERTRALINE HYDROCHLORIDE [Suspect]
     Active Substance: SERTRALINE HYDROCHLORIDE
     Indication: Depression
     Dosage: OTHER QUANTITY : 1 TABLET(S);?
     Route: 048
     Dates: start: 20030711
  2. MIRAPEX [Concomitant]
     Active Substance: PRAMIPEXOLE DIHYDROCHLORIDE
  3. VITAMIN B12 [Concomitant]
     Active Substance: CYANOCOBALAMIN
  4. KLONOPIN [Concomitant]
     Active Substance: CLONAZEPAM
  5. XALATIN [Concomitant]
  6. DORZOLAMIDE [Concomitant]
     Active Substance: DORZOLAMIDE
  7. AVAPRO [Concomitant]
     Active Substance: IRBESARTAN
  8. CRESTOR [Concomitant]
     Active Substance: ROSUVASTATIN CALCIUM
  9. VASCEPA [Concomitant]
     Active Substance: ICOSAPENT ETHYL
  10. DEVICE [Concomitant]
     Active Substance: DEVICE
  11. ANKLE BRACE [Concomitant]
  12. MULTIVITAMIN [Concomitant]
  13. MAGNESIUM [Concomitant]
     Active Substance: MAGNESIUM
  14. REFRESH SOLUTION NOS [Concomitant]
     Active Substance: CARBOXYMETHYLCELLULOSE SODIUM\GLYCERIN
  15. MOTRIN [Concomitant]
     Active Substance: IBUPROFEN
  16. TYLENOL [Concomitant]
     Active Substance: ACETAMINOPHEN
  17. ASPIRIN [Concomitant]
     Active Substance: ASPIRIN
  18. LEVOMEFOLATE CALCIUM [Concomitant]
     Active Substance: LEVOMEFOLATE CALCIUM

REACTIONS (7)
  - Open angle glaucoma [None]
  - Conjunctivitis [None]
  - Photophobia [None]
  - Methylenetetrahydrofolate reductase gene mutation [None]
  - CYP2D6 polymorphism [None]
  - CYP2D6 polymorphism [None]
  - Adverse drug reaction [None]

NARRATIVE: CASE EVENT DATE: 20090717
